FAERS Safety Report 16568978 (Version 1)
Quarter: 2019Q3

REPORT INFORMATION
  Report Type: Spontaneous
  Country: US (occurrence: US)
  Receive Date: 20190531
  Receipt Date: 20190531
  Transmission Date: 20191004
  Serious: No
  Sender: FDA-Public Use
  Company Number: None

PATIENT
  Age: 68 Year
  Sex: Female
  Weight: 156.49 kg

DRUGS (2)
  1. ELIGARD [Suspect]
     Active Substance: LEUPROLIDE ACETATE
     Indication: BONE DISORDER
     Dosage: ?          OTHER FREQUENCY:EVERY 6 MONTHS AS ;?
     Route: 058
     Dates: start: 201705
  2. ELIGARD [Suspect]
     Active Substance: LEUPROLIDE ACETATE
     Indication: PROSTATE CANCER
     Dosage: ?          OTHER FREQUENCY:EVERY 6 MONTHS AS ;?
     Route: 058
     Dates: start: 201705

REACTIONS (2)
  - Skin abrasion [None]
  - Fall [None]
